FAERS Safety Report 20792109 (Version 1)
Quarter: 2022Q2

REPORT INFORMATION
  Report Type: Spontaneous
  Country: GB (occurrence: GB)
  Receive Date: 20220505
  Receipt Date: 20220505
  Transmission Date: 20220721
  Serious: Yes (Other)
  Sender: FDA-Public Use
  Company Number: GB-MHRA-MED-202205041649500920-0YOPM

PATIENT
  Age: 35 Year
  Sex: Female

DRUGS (1)
  1. EMPAGLIFLOZIN [Suspect]
     Active Substance: EMPAGLIFLOZIN
     Indication: Blood glucose increased

REACTIONS (1)
  - Visual impairment [Recovered/Resolved]
